FAERS Safety Report 16394408 (Version 2)
Quarter: 2019Q2

REPORT INFORMATION
  Report Type: Report from Study
  Country: US (occurrence: US)
  Receive Date: 20190605
  Receipt Date: 20190610
  Transmission Date: 20190711
  Serious: Yes (Other)
  Sender: FDA-Public Use
  Company Number: US-JNJFOC-20180912430

PATIENT
  Age: 69 Year
  Sex: Male

DRUGS (30)
  1. RESCUE [Concomitant]
     Indication: ASTHMA
  2. SODIUM CHLORIDE. [Concomitant]
     Active Substance: SODIUM CHLORIDE
  3. FUROSEMIDE. [Concomitant]
     Active Substance: FUROSEMIDE
  4. PROVIGIL [Concomitant]
     Active Substance: MODAFINIL
  5. BUPROPION. [Concomitant]
     Active Substance: BUPROPION
  6. CLOBETAZOL [Concomitant]
     Active Substance: CLOBETASOL PROPIONATE
  7. CAPSAICIN. [Concomitant]
     Active Substance: CAPSAICIN
     Route: 061
  8. ALFUZOSINE [Concomitant]
     Active Substance: ALFUZOSIN HYDROCHLORIDE
  9. FLONASE [Concomitant]
     Active Substance: FLUTICASONE PROPIONATE
  10. OXYBUTYNIN. [Concomitant]
     Active Substance: OXYBUTYNIN CHLORIDE
  11. VITAMIN C [Concomitant]
     Active Substance: ASCORBIC ACID
  12. CASEIN. [Concomitant]
     Active Substance: CASEIN
  13. CLOBETASOL [Concomitant]
     Active Substance: CLOBETASOL
  14. ALBUTEROL. [Concomitant]
     Active Substance: ALBUTEROL
  15. FISH OIL [Concomitant]
     Active Substance: FISH OIL
  16. ALLEGRA [Concomitant]
     Active Substance: FEXOFENADINE HYDROCHLORIDE
  17. PLANTAGO OVATA [Concomitant]
     Active Substance: HERBALS\PLANTAGO OVATA LEAF
  18. MELATONIN [Concomitant]
     Active Substance: MELATONIN
  19. BACITRACIN W/NEOMYCIN/POLYMYXIN B [Concomitant]
     Active Substance: BACITRACIN\NEOMYCIN\POLYMYXIN B
  20. ESOMEPRAZOLE. [Concomitant]
     Active Substance: ESOMEPRAZOLE MAGNESIUM
  21. PAXIL [Concomitant]
     Active Substance: PAROXETINE HYDROCHLORIDE
  22. CALLEX [Concomitant]
  23. DOCUSATE [Concomitant]
     Active Substance: DOCUSATE
  24. INFLUENZA VACCINE [Concomitant]
     Active Substance: INFLUENZA VIRUS VACCINE
  25. MULTIVITAMINS [Concomitant]
     Active Substance: VITAMINS
  26. CAPZASIN HP ARTHRITIS PAIN RELIEF [Concomitant]
     Active Substance: CAPSAICIN
  27. IRON [Concomitant]
     Active Substance: IRON
  28. IMBRUVICA [Suspect]
     Active Substance: IBRUTINIB
     Indication: WALDENSTROM^S MACROGLOBULINAEMIA
     Dosage: 420 MG QD
     Route: 048
     Dates: start: 20180401
  29. BUPROPION. [Concomitant]
     Active Substance: BUPROPION
  30. SINUS RINSE [Concomitant]
     Active Substance: SODIUM BICARBONATE\SODIUM CHLORIDE

REACTIONS (16)
  - Constipation [Not Recovered/Not Resolved]
  - Product dose omission [Unknown]
  - Increased tendency to bruise [Not Recovered/Not Resolved]
  - Psychotherapy [Unknown]
  - Skin ulcer [Recovering/Resolving]
  - Paronychia [Recovered/Resolved]
  - Fall [Recovered/Resolved]
  - Fatigue [Not Recovered/Not Resolved]
  - Psoriasis [Recovering/Resolving]
  - Somnolence [Not Recovered/Not Resolved]
  - Muscle rupture [Recovered/Resolved]
  - Road traffic accident [Recovered/Resolved]
  - Localised infection [Recovered/Resolved]
  - Haemorrhagic diathesis [Not Recovered/Not Resolved]
  - Skin atrophy [Recovering/Resolving]
  - Muscle spasms [Not Recovered/Not Resolved]

NARRATIVE: CASE EVENT DATE: 2018
